FAERS Safety Report 22157106 (Version 2)
Quarter: 2023Q2

REPORT INFORMATION
  Report Type: Report from Study
  Country: IT (occurrence: IT)
  Receive Date: 20230330
  Receipt Date: 20230407
  Transmission Date: 20230722
  Serious: Yes (Death, Hospitalization, Other)
  Sender: FDA-Public Use
  Company Number: IT-TAKEDA-2023TUS032059

PATIENT
  Age: 21 Year
  Sex: Male

DRUGS (13)
  1. IDURSULFASE [Suspect]
     Active Substance: IDURSULFASE
     Indication: Mucopolysaccharidosis II
     Route: 042
  2. VALPROIC ACID [Concomitant]
     Active Substance: VALPROIC ACID
     Indication: Nervous system disorder
     Dosage: UNK
     Route: 048
     Dates: start: 201006
  3. BETAMETHASONE [Concomitant]
     Active Substance: BETAMETHASONE
     Indication: Respiratory disorder
     Dosage: UNK
     Dates: start: 20101115, end: 20101124
  4. CLARITHROMYCIN [Concomitant]
     Active Substance: CLARITHROMYCIN
     Indication: Anti-infective therapy
     Dosage: UNK
     Dates: start: 20101115, end: 20101125
  5. ALBUTEROL [Concomitant]
     Active Substance: ALBUTEROL
     Indication: Respiratory disorder
     Dosage: UNK
     Route: 055
     Dates: start: 20101115
  6. FLURBIPROFEN [Concomitant]
     Active Substance: FLURBIPROFEN
     Indication: Pain
     Dosage: UNK
     Route: 048
     Dates: start: 20110321, end: 20110404
  7. FLURBIPROFEN [Concomitant]
     Active Substance: FLURBIPROFEN
     Dosage: UNK
     Route: 048
     Dates: start: 20110501, end: 20110531
  8. POLYETHYLENE GLYCOLS [Concomitant]
     Active Substance: POLYETHYLENE GLYCOLS
     Indication: Constipation
     Dosage: UNK
     Route: 048
     Dates: start: 201605, end: 20180322
  9. FLUTICASONE [Concomitant]
     Active Substance: FLUTICASONE
     Indication: Respiratory disorder
     Dosage: UNK
     Route: 055
     Dates: start: 201605
  10. ESOMEPRAZOLE [Concomitant]
     Active Substance: ESOMEPRAZOLE
     Indication: Gastric disorder
     Dosage: UNK
     Route: 048
     Dates: start: 20180102
  11. SUPRADIN [Concomitant]
     Indication: Supplementation therapy
     Dosage: UNK
     Route: 048
     Dates: start: 20181120
  12. DESLORATADINE [Concomitant]
     Active Substance: DESLORATADINE
     Indication: Rhinitis allergic
     Dosage: UNK
     Route: 048
     Dates: start: 20190503
  13. GLYCOPYRROLATE [Concomitant]
     Active Substance: GLYCOPYRROLATE
     Indication: Salivary hypersecretion
     Dosage: UNK
     Route: 048
     Dates: start: 20220505

REACTIONS (1)
  - Respiratory failure [Fatal]

NARRATIVE: CASE EVENT DATE: 20230223
